FAERS Safety Report 7376637-7 (Version None)
Quarter: 2011Q1

REPORT INFORMATION
  Report Type: 
  Country: None (occurrence: None)
  Receive Date: 20110325
  Receipt Date: 20110316
  Transmission Date: 20110831
  Serious: Yes (Hospitalization)
  Sender: FDA-Public Use
  Company Number: SE-ASTRAZENECA-2011SE15268

PATIENT
  Age: 48 Year
  Sex: Female

DRUGS (2)
  1. ZOMIG [Suspect]
     Route: 048
     Dates: start: 20110309, end: 20110309
  2. DEPO-PROVERA [Concomitant]

REACTIONS (1)
  - TORSADE DE POINTES [None]
